FAERS Safety Report 17581095 (Version 1)
Quarter: 2020Q1

REPORT INFORMATION
  Report Type: Spontaneous
  Country: US (occurrence: US)
  Receive Date: 20200320
  Receipt Date: 20200320
  Transmission Date: 20200409
  Serious: Yes (Disabling, Other)
  Sender: FDA-Public Use
  Company Number: None

PATIENT
  Age: 65 Year
  Sex: Male
  Weight: 71.21 kg

DRUGS (8)
  1. VITAMIN B-COMPLEX [Concomitant]
     Active Substance: DEXPANTHENOL\NIACINAMIDE\PYRIDOXINE HYDROCHLORIDE\RIBOFLAVIN 5^-PHOSPHATE SODIUM\THIAMINE HYDROCHLORIDE
  2. TRAVATAN Z [Suspect]
     Active Substance: TRAVOPROST
     Indication: OPEN ANGLE GLAUCOMA
     Dosage: ?          QUANTITY:1 GTT DROP(S);OTHER ROUTE:EYE DROP?
     Dates: start: 20200204, end: 20200215
  3. ACETAMINOPHEN. [Concomitant]
     Active Substance: ACETAMINOPHEN
  4. LATANOPROST OPHTHALMIC SOLUTION [Suspect]
     Active Substance: LATANOPROST
     Indication: OPEN ANGLE GLAUCOMA
     Dosage: ?          QUANTITY:1 GTT DROP(S);OTHER ROUTE:EYE DROP?
     Dates: start: 20150602, end: 20200203
  5. BRIMONIDINE TARTRATE 0.2% [Concomitant]
  6. LUMIGAN [Suspect]
     Active Substance: BIMATOPROST
     Indication: OPEN ANGLE GLAUCOMA
     Dosage: ?          QUANTITY:1 GTT DROP(S);OTHER ROUTE:EYE DROP?
     Dates: start: 20200216, end: 20200222
  7. 81MG ENTERIC ASPIRIN [Concomitant]
  8. TIMOLOL MALEATE 0.5% [Concomitant]
     Active Substance: TIMOLOL MALEATE

REACTIONS (2)
  - Migraine [None]
  - Pain [None]

NARRATIVE: CASE EVENT DATE: 20150906
